FAERS Safety Report 5186263-6 (Version None)
Quarter: 2006Q4

REPORT INFORMATION
  Report Type: 
  Country: None (occurrence: None)
  Receive Date: 20061212
  Receipt Date: 20061204
  Transmission Date: 20070319
  Serious: Yes (Hospitalization, Other)
  Sender: FDA-Public Use
  Company Number: HQWYE940109NOV06

PATIENT
  Age: 77 Year
  Sex: Female
  Weight: 68.1 kg

DRUGS (2)
  1. PREMARIN [Suspect]
     Indication: MENOPAUSAL SYMPTOMS
     Dosage: ORAL
     Route: 048
     Dates: start: 19860101, end: 20061001
  2. ASPIRIN [Concomitant]

REACTIONS (5)
  - BRAIN NEOPLASM [None]
  - DEHYDRATION [None]
  - DYSGEUSIA [None]
  - ULCER [None]
  - WEIGHT DECREASED [None]
